FAERS Safety Report 9412415 (Version 2)
Quarter: 2013Q3

REPORT INFORMATION
  Report Type: Spontaneous
  Country: DE (occurrence: DE)
  Receive Date: 20130722
  Receipt Date: 20130926
  Transmission Date: 20140515
  Serious: Yes (Hospitalization, Other)
  Sender: FDA-Public Use
  Company Number: DE-ELI_LILLY_AND_COMPANY-DE201307004090

PATIENT
  Sex: Male

DRUGS (4)
  1. CYMBALTA [Suspect]
     Indication: MAJOR DEPRESSION
     Dosage: 30 MG, UNKNOWN
     Route: 048
     Dates: start: 20130322, end: 20130622
  2. BETAMETHASON [Concomitant]
     Indication: ASTHMA
     Dosage: 1 DF, EACH EVENING
  3. SEREVENT [Concomitant]
     Indication: ASTHMA
     Dosage: 1 DF, EACH EVENING
  4. RAMIPRIL [Concomitant]
     Indication: HYPERTENSION
     Dosage: 5 MG, UNKNOWN

REACTIONS (1)
  - Basal ganglia haemorrhage [Recovered/Resolved]
